FAERS Safety Report 10395060 (Version 1)
Quarter: 2014Q1

REPORT INFORMATION
  Report Type: Spontaneous
  Country: US (occurrence: None)
  Receive Date: 20130524
  Receipt Date: 20130524
  Transmission Date: 20141002
  Serious: No
  Sender: FDA-Public Use
  Company Number: PHEH2011US07208

PATIENT
  Age: 59 Year
  Sex: Female

DRUGS (2)
  1. GILENYA (FINGOLIMOD) CAPSULE, 0.5MG [Suspect]
     Indication: MULTIPLE SCLEROSIS
     Route: 048
     Dates: start: 20101123
  2. CRESTOR (ROSUVASTATIN CALCIUM), 5MG [Concomitant]

REACTIONS (3)
  - Liver function test abnormal [None]
  - Gastrooesophageal reflux disease [None]
  - Upper-airway cough syndrome [None]
